FAERS Safety Report 8776293 (Version 1)
Quarter: 2012Q4

REPORT INFORMATION
  Report Type: 
  Country: US (occurrence: US)
  Receive Date: 20120910
  Receipt Date: 20120910
  Transmission Date: 20130627
  Serious: No
  Sender: FDA-Public Use
  Company Number: US-PFIZER INC-2012220397

PATIENT
  Age: 48 Year
  Sex: Female
  Weight: 104.31 kg

DRUGS (4)
  1. LYRICA [Suspect]
     Indication: FIBROMYALGIA
     Dosage: 50 mg, 2x/day
     Route: 048
     Dates: start: 201207, end: 201208
  2. LYRICA [Suspect]
     Dosage: 75 mg, 2x/day
     Route: 048
     Dates: start: 201208, end: 20120903
  3. PROZAC [Concomitant]
     Dosage: 20 mg, 1x/day
     Route: 048
  4. ALEVE [Concomitant]
     Dosage: 220 mg, 2x/day
     Route: 048

REACTIONS (4)
  - Headache [Unknown]
  - Arthralgia [Unknown]
  - Arthralgia [Unknown]
  - Arthralgia [Unknown]
